FAERS Safety Report 15135218 (Version 1)
Quarter: 2018Q3

REPORT INFORMATION
  Report Type: Spontaneous
  Country: US (occurrence: US)
  Receive Date: 20180616
  Receipt Date: 20180616
  Transmission Date: 20181010
  Serious: Yes (Other)
  Sender: FDA-Public Use
  Company Number: None

PATIENT
  Age: 50 Year
  Sex: Male
  Weight: 99 kg

DRUGS (8)
  1. VITAMIN B12 [Concomitant]
     Active Substance: CYANOCOBALAMIN
  2. METFORMIN [Suspect]
     Active Substance: METFORMIN HYDROCHLORIDE
     Indication: TYPE 2 DIABETES MELLITUS
     Dosage: ?          QUANTITY:2 TABLET(S);?
     Route: 048
     Dates: start: 20170415, end: 20180415
  3. METFORMIN ER [Suspect]
     Active Substance: METFORMIN HYDROCHLORIDE
     Indication: TYPE 2 DIABETES MELLITUS
     Dosage: ?          QUANTITY:2 TABLET(S);?
     Route: 048
     Dates: start: 20170415, end: 20180315
  4. GLIMEPIRIDE. [Concomitant]
     Active Substance: GLIMEPIRIDE
  5. ATORVASTATIN [Concomitant]
     Active Substance: ATORVASTATIN
  6. ATENOLOL. [Concomitant]
     Active Substance: ATENOLOL
  7. METFORMIN [Concomitant]
     Active Substance: METFORMIN HYDROCHLORIDE
  8. MULTIVITAMIN [Concomitant]
     Active Substance: VITAMINS

REACTIONS (27)
  - Muscle spasms [None]
  - Balance disorder [None]
  - Onychomycosis [None]
  - Arthralgia [None]
  - Palpitations [None]
  - Hepatomegaly [None]
  - Blood cholesterol increased [None]
  - Asthenia [None]
  - Dizziness [None]
  - Skin burning sensation [None]
  - Weight decreased [None]
  - Splenomegaly [None]
  - Abdominal pain upper [None]
  - Abdominal discomfort [None]
  - Neuropathy peripheral [None]
  - Bone pain [None]
  - Oedema [None]
  - Rash [None]
  - Diarrhoea [None]
  - Musculoskeletal stiffness [None]
  - Low density lipoprotein increased [None]
  - Depression [None]
  - Blood pressure increased [None]
  - Hypoaesthesia [None]
  - Sleep disorder [None]
  - Gait disturbance [None]
  - Malabsorption [None]

NARRATIVE: CASE EVENT DATE: 20170501
